FAERS Safety Report 8158582-2 (Version None)
Quarter: 2012Q1

REPORT INFORMATION
  Report Type: 
  Country: None (occurrence: None)
  Receive Date: 20120223
  Receipt Date: 20120215
  Transmission Date: 20120608
  Serious: Yes (Life-Threatening, Hospitalization)
  Sender: FDA-Public Use
  Company Number: CA-BAYER-2012-015269

PATIENT
  Age: 18 Year
  Sex: Female
  Weight: 54 kg

DRUGS (5)
  1. IBUPROFEN (ADVIL) [Concomitant]
     Route: 065
  2. L'HUILE BIO OIL [Concomitant]
  3. FLINTSTONES MULTIPLE VITAMINS [Concomitant]
     Route: 065
  4. YASMIN [Suspect]
  5. TYLENOL NO.1 [Concomitant]

REACTIONS (1)
  - THROMBOPHLEBITIS [None]
